FAERS Safety Report 4349493-9 (Version None)
Quarter: 2004Q2

REPORT INFORMATION
  Report Type: 
  Country: None (occurrence: None)
  Receive Date: 20040426
  Receipt Date: 20040412
  Transmission Date: 20050107
  Serious: Yes (Hospitalization, Other)
  Sender: FDA-Public Use
  Company Number: 2003118984

PATIENT
  Age: 71 Year
  Sex: Female
  Weight: 61.6892 kg

DRUGS (4)
  1. NEURONTIN [Suspect]
     Indication: NEUROPATHY PERIPHERAL
     Dosage: 900 MG (TID), ORAL
     Route: 048
     Dates: start: 19990820
  2. GLUCOSAMINE SULFATE/MINERALS/MULTIVITAMINS (GLUCOSAMINE SULFATE, VITAM [Suspect]
     Indication: ARTHRITIS
     Dates: end: 19990101
  3. HYOSCYAMINE SULFATE AND PHENOBARBITAL [Suspect]
     Indication: IRRITABLE BOWEL SYNDROME
  4. PANCRELIPASE [Concomitant]

REACTIONS (13)
  - ABDOMINAL PAIN [None]
  - ABNORMAL FAECES [None]
  - ARTHRITIS [None]
  - BLOOD GLUCOSE DECREASED [None]
  - BODY HEIGHT DECREASED [None]
  - CONDITION AGGRAVATED [None]
  - FATIGUE [None]
  - FOOD ALLERGY [None]
  - HYPERSENSITIVITY [None]
  - IRRITABLE BOWEL SYNDROME [None]
  - PANCREATIC ENZYMES ABNORMAL [None]
  - REACTION TO DRUG EXCIPIENT [None]
  - VISION BLURRED [None]
